FAERS Safety Report 8251651-8 (Version None)
Quarter: 2012Q1

REPORT INFORMATION
  Report Type: 
  Country: None (occurrence: None)
  Receive Date: 20120328
  Receipt Date: 20120319
  Transmission Date: 20120608
  Serious: Yes (Hospitalization, Other)
  Sender: FDA-Public Use
  Company Number: 2011MA003505

PATIENT
  Sex: Female
  Weight: 70.3075 kg

DRUGS (16)
  1. CLONIDINE [Concomitant]
  2. PERCOCET [Concomitant]
  3. VITAMIN E [Concomitant]
  4. METOCLOPRAMIDE [Suspect]
     Dosage: 10 MG
     Dates: start: 20081104, end: 20090428
  5. PRILOSEC [Concomitant]
  6. GLIPIZIDE [Concomitant]
  7. IRON [Concomitant]
  8. NORVASC [Concomitant]
  9. COREG [Concomitant]
  10. SULAR [Concomitant]
  11. ZOFRAN [Concomitant]
  12. INSULIN [Concomitant]
  13. ZOLOFT [Concomitant]
  14. FOLIC ACID [Concomitant]
  15. FLEXERIL [Concomitant]
  16. HYDRALAZINE HCL [Concomitant]

REACTIONS (10)
  - ASTHENIA [None]
  - TARDIVE DYSKINESIA [None]
  - DYSTONIA [None]
  - MALAISE [None]
  - NAUSEA [None]
  - ECONOMIC PROBLEM [None]
  - EXTRAPYRAMIDAL DISORDER [None]
  - PULMONARY OEDEMA [None]
  - PNEUMONIA [None]
  - EMOTIONAL DISORDER [None]
